FAERS Safety Report 24390280 (Version 1)
Quarter: 2024Q4

REPORT INFORMATION
  Report Type: Spontaneous
  Country: GB (occurrence: GB)
  Receive Date: 20241003
  Receipt Date: 20241003
  Transmission Date: 20250115
  Serious: Yes (Hospitalization, Other)
  Sender: AUROBINDO
  Company Number: GB-MHRA-MIDB-fe068b56-0690-4c08-b396-62ba8c2b1a2f

PATIENT
  Age: 74 Year
  Sex: Male

DRUGS (1)
  1. IBUPROFEN [Suspect]
     Active Substance: IBUPROFEN
     Indication: Product used for unknown indication
     Dosage: UNK
     Route: 065

REACTIONS (4)
  - Duodenal ulcer [Unknown]
  - Gastric ulcer [Unknown]
  - Oesophagitis [Unknown]
  - Upper gastrointestinal haemorrhage [Recovered/Resolved]
